FAERS Safety Report 10506666 (Version 1)
Quarter: 2014Q4

REPORT INFORMATION
  Report Type: Spontaneous
  Country: GB (occurrence: None)
  Receive Date: 20141007
  Receipt Date: 20141007
  Transmission Date: 20150528
  Serious: Yes (Hospitalization)
  Sender: FDA-Public Use
  Company Number: 20141958

PATIENT
  Sex: Female

DRUGS (1)
  1. METOJECT (METHOTREXATE) [Suspect]
     Active Substance: METHOTREXATE SODIUM
     Dosage: SOLUTION FOR INJECTION IN PRE-FILLED SYRINGE

REACTIONS (1)
  - Gallbladder disorder [None]
